FAERS Safety Report 16950464 (Version 1)
Quarter: 2019Q4

REPORT INFORMATION
  Report Type: Spontaneous
  Country: US (occurrence: US)
  Receive Date: 20191023
  Receipt Date: 20191023
  Transmission Date: 20200122
  Serious: No
  Sender: FDA-Public Use
  Company Number: US-BEH-2019108376

PATIENT
  Age: 59 Year
  Sex: Male

DRUGS (1)
  1. HIZENTRA [Suspect]
     Active Substance: HUMAN IMMUNOGLOBULIN G
     Indication: POLYNEUROPATHY
     Dosage: 18 GRAM, BIW
     Route: 058
     Dates: start: 20191015

REACTIONS (5)
  - Product use in unapproved indication [Unknown]
  - Pruritus [Unknown]
  - Rash [Unknown]
  - No adverse event [Unknown]
  - Infusion site erythema [Unknown]
